FAERS Safety Report 4844793-8 (Version None)
Quarter: 2005Q4

REPORT INFORMATION
  Report Type: 
  Country: None (occurrence: None)
  Receive Date: 20051205
  Receipt Date: 20051123
  Transmission Date: 20060501
  Serious: Yes (Other)
  Sender: FDA-Public Use
  Company Number: US-BRISTOL-MYERS SQUIBB COMPANY-13193347

PATIENT
  Age: 26 Year
  Sex: Male

DRUGS (11)
  1. DIDANOSINE [Suspect]
     Indication: HIV INFECTION
     Dosage: BASELINE DOSE 250 DAILY; CHANGED TO 100 MG DAILY
  2. ENFUVIRTIDE [Suspect]
     Indication: HIV INFECTION
     Dosage: DAY1:90 MG 2X DAILY; INTERRUPTED DAY 14;14 DAYS AFTER RECHALLENGE WITH SINGLE 90 MG; RESTARTED/CONT.
     Route: 058
  3. TENOFOVIR [Suspect]
     Indication: HIV INFECTION
  4. LAMIVUDINE [Suspect]
     Dosage: CHANGED TO 100 MG DAILY
  5. LOPINAVIR + RITONAVIR [Suspect]
     Indication: HIV INFECTION
  6. TRIMETHOPRIM [Suspect]
     Indication: PROPHYLAXIS
  7. SULFAMETHOXAZOLE [Suspect]
     Indication: PROPHYLAXIS
  8. AZITHROMYCIN [Concomitant]
  9. POTASSIUM BICARBONATE [Concomitant]
  10. POTASSIUM CHLORIDE [Concomitant]
  11. ADEFOVIR DIPIVOXIL KIT [Concomitant]

REACTIONS (5)
  - DEPRESSION [None]
  - NAUSEA [None]
  - RASH [None]
  - RENAL IMPAIRMENT [None]
  - VOMITING [None]
